FAERS Safety Report 6255850-6 (Version None)
Quarter: 2009Q3

REPORT INFORMATION
  Report Type: 
  Country: None (occurrence: None)
  Receive Date: 20090703
  Receipt Date: 20090615
  Transmission Date: 20100115
  Serious: Yes (Other)
  Sender: FDA-Public Use
  Company Number: US-PFIZER INC-2009227543

PATIENT
  Sex: Female
  Weight: 61.234 kg

DRUGS (20)
  1. DIFLUCAN [Suspect]
     Indication: INFECTION
  2. SYNTHROID [Concomitant]
     Dosage: 50 MG, 1X/DAY
  3. ESTRACE [Concomitant]
     Dosage: 1 MG, 1X/DAY
  4. PROTONIX [Concomitant]
     Indication: REFLUX GASTRITIS
     Dosage: 40 MG, UNK
  5. TOPROL-XL [Concomitant]
     Dosage: 25 MG, 1X/DAY
  6. CRESTOR [Concomitant]
     Indication: BLOOD CHOLESTEROL
     Dosage: 40 MG, 1X/DAY
  7. ZETIA [Concomitant]
     Indication: BLOOD CHOLESTEROL
     Dosage: 10 MG, 1X/DAY
  8. ALTACE [Concomitant]
     Dosage: 5 MG, 1X/DAY
  9. FOSAMAX [Concomitant]
     Dosage: 71.39 MG, 1X/DAY
  10. PLAQUENIL [Concomitant]
     Indication: ARTHRITIS
     Dosage: 200 MG, 2X/DAY
  11. FLEXERIL [Concomitant]
     Indication: FIBROMYALGIA
     Dosage: 100 MG, 1X/DAY
  12. CYMBALTA [Concomitant]
     Indication: FIBROMYALGIA
     Dosage: 60 MG, 1X/DAY
  13. FLONASE [Concomitant]
     Dosage: 25 G, 1X/DAY
  14. MIRALAX [Concomitant]
     Dosage: 17 G, 2X/DAY
  15. LIBRAX [Concomitant]
  16. DOVONEX [Concomitant]
     Indication: PSORIASIS
     Dosage: UNK
  17. DENAVIR [Concomitant]
     Dosage: UNK
  18. TRIAMCINOLONE [Concomitant]
     Indication: PSORIASIS
     Dosage: UNK
  19. ULTRAM [Concomitant]
     Indication: PAIN
     Dosage: 50 MG, UNK
  20. NEURONTIN [Concomitant]
     Indication: PAIN
     Dosage: 100 MG, UNK

REACTIONS (2)
  - ENCEPHALITIS [None]
  - SPINAL OPERATION [None]
